FAERS Safety Report 14981467 (Version 1)
Quarter: 2018Q2

REPORT INFORMATION
  Report Type: Report from Study
  Country: None (occurrence: US)
  Receive Date: 20180606
  Receipt Date: 20180606
  Transmission Date: 20180711
  Serious: Yes (Other)
  Sender: FDA-Public Use
  Company Number: US-ABBVIE-18K-163-2354844-00

PATIENT
  Age: 72 Year
  Sex: Female
  Weight: 59.02 kg

DRUGS (6)
  1. CALCIUM CARBONATE W/MAGNESIUM OXIDE/ZINC GLUC [Concomitant]
     Indication: OSTEOPENIA
  2. CALCIUM CARBONATE W/MAGNESIUM OXIDE/ZINC GLUC [Concomitant]
     Indication: VITAMIN SUPPLEMENTATION
  3. AMITRIPTYLINE [Concomitant]
     Active Substance: AMITRIPTYLINE
     Indication: CROHN^S DISEASE
  4. PANTOPRAZOLE [Concomitant]
     Active Substance: PANTOPRAZOLE
     Indication: GASTROOESOPHAGEAL REFLUX DISEASE
  5. HUMIRA [Suspect]
     Active Substance: ADALIMUMAB
     Indication: CROHN^S DISEASE
     Route: 058
     Dates: start: 20171026
  6. AMITRIPTYLINE [Concomitant]
     Active Substance: AMITRIPTYLINE
     Indication: GASTROINTESTINAL MOTILITY DISORDER

REACTIONS (8)
  - Visual impairment [Recovering/Resolving]
  - Post procedural complication [Recovering/Resolving]
  - Intraocular pressure increased [Recovered/Resolved]
  - Cataract [Recovered/Resolved]
  - Cataract [Recovered/Resolved]
  - Post procedural infection [Recovered/Resolved]
  - Eye inflammation [Recovered/Resolved]
  - Eye infection bacterial [Recovered/Resolved]

NARRATIVE: CASE EVENT DATE: 201801
